FAERS Safety Report 7141920-7 (Version None)
Quarter: 2010Q4

REPORT INFORMATION
  Report Type: 
  Country: None (occurrence: None)
  Receive Date: 20101203
  Receipt Date: 20101203
  Transmission Date: 20110411
  Serious: Yes (Other)
  Sender: FDA-Public Use
  Company Number: None

PATIENT
  Age: 51 Year
  Sex: Male

DRUGS (5)
  1. ATRIPLA [Suspect]
     Indication: HIV INFECTION
     Dosage: EFV 600 MG PO QHS
     Route: 048
     Dates: start: 20101001, end: 20101201
  2. PANTROPRAZOLE [Concomitant]
  3. TRAMADOL [Concomitant]
  4. METFORMIN HCL [Concomitant]
  5. DILTAZAPEM [Concomitant]

REACTIONS (3)
  - ABNORMAL DREAMS [None]
  - DIZZINESS [None]
  - DRUG INTOLERANCE [None]
